FAERS Safety Report 6311783-8 (Version None)
Quarter: 2009Q3

REPORT INFORMATION
  Report Type: 
  Country: None (occurrence: None)
  Receive Date: 20090813
  Receipt Date: 20090813
  Transmission Date: 20100115
  Serious: Yes (Hospitalization)
  Sender: FDA-Public Use
  Company Number: None

PATIENT
  Age: 54 Year
  Sex: Male
  Weight: 117.9352 kg

DRUGS (3)
  1. SUSTIVA [Suspect]
     Indication: HIV TEST POSITIVE
     Dosage: 600 MG ONCE QD PO
     Route: 048
  2. TRUVADA [Suspect]
     Indication: HIV TEST POSITIVE
     Dosage: 200/300 MG ONCE QD PO
     Route: 048
  3. MULTI-VITAMIN [Concomitant]

REACTIONS (1)
  - DYSPNOEA [None]
